FAERS Safety Report 7201564-5 (Version None)
Quarter: 2010Q4

REPORT INFORMATION
  Report Type: 
  Country: None (occurrence: None)
  Receive Date: 20101229
  Receipt Date: 20101229
  Transmission Date: 20110411
  Serious: Yes (Death)
  Sender: FDA-Public Use
  Company Number: US-JNJFOC-20101206242

PATIENT
  Age: 42 Year
  Sex: Female

DRUGS (2)
  1. DURAGESIC-50 [Suspect]
     Indication: PRODUCT USED FOR UNKNOWN INDICATION
     Dosage: 100 UG/HR 11 PATCHES
     Route: 062
  2. ETHANOL [Suspect]
     Indication: PRODUCT USED FOR UNKNOWN INDICATION
     Route: 065

REACTIONS (3)
  - CARDIAC ARREST [None]
  - COMPLETED SUICIDE [None]
  - DRUG TOXICITY [None]
